FAERS Safety Report 6361378-5 (Version None)
Quarter: 2009Q3

REPORT INFORMATION
  Report Type: 
  Country: None (occurrence: None)
  Receive Date: 20090918
  Receipt Date: 20090908
  Transmission Date: 20100115
  Serious: Yes (Other)
  Sender: FDA-Public Use
  Company Number: GB-ABBOTT-09P-167-0595989-00

PATIENT
  Age: 51 Year
  Sex: Male

DRUGS (5)
  1. NORVIR [Suspect]
     Indication: DRUG USE FOR UNKNOWN INDICATION
  2. LAMIVUDINE [Suspect]
     Indication: DRUG USE FOR UNKNOWN INDICATION
  3. FOSAMPRENAVIR CALCIUM [Suspect]
     Indication: DRUG USE FOR UNKNOWN INDICATION
  4. SAQUINAVIR [Suspect]
     Indication: DRUG USE FOR UNKNOWN INDICATION
  5. TENOFOVIR DISOPROXIL FUMARATE [Suspect]
     Indication: DRUG USE FOR UNKNOWN INDICATION

REACTIONS (1)
  - LIPOATROPHY [None]
